FAERS Safety Report 10632336 (Version 2)
Quarter: 2014Q4

REPORT INFORMATION
  Report Type: Spontaneous
  Country: US (occurrence: US)
  Receive Date: 20141205
  Receipt Date: 20141205
  Transmission Date: 20150529
  Serious: No
  Sender: FDA-Public Use
  Company Number: US-BRISTOL-MYERS SQUIBB COMPANY-21188578

PATIENT
  Age: 61 Year
  Sex: Female

DRUGS (4)
  1. ORENCIA [Suspect]
     Active Substance: ABATACEPT
     Indication: JOINT STIFFNESS
     Route: 058
     Dates: start: 20131024, end: 20140703
  2. ORENCIA [Suspect]
     Active Substance: ABATACEPT
     Indication: PERIPHERAL SWELLING
     Route: 058
     Dates: start: 20131024, end: 20140703
  3. ORENCIA [Suspect]
     Active Substance: ABATACEPT
     Indication: MUSCULOSKELETAL STIFFNESS
     Route: 058
     Dates: start: 20131024, end: 20140703
  4. ORENCIA [Suspect]
     Active Substance: ABATACEPT
     Indication: JOINT STIFFNESS
     Route: 058
     Dates: start: 20131024, end: 20140703

REACTIONS (2)
  - Malaise [Unknown]
  - Nausea [Recovered/Resolved]

NARRATIVE: CASE EVENT DATE: 20131024
